FAERS Safety Report 15337242 (Version 4)
Quarter: 2024Q3

REPORT INFORMATION
  Report Type: Spontaneous
  Country: DE (occurrence: DE)
  Receive Date: 20180831
  Receipt Date: 20240925
  Transmission Date: 20241017
  Serious: Yes (Other)
  Sender: AUROBINDO
  Company Number: DE-AUROBINDO-AUR-APL-2018-043385

PATIENT
  Age: 51 Year
  Sex: Male
  Weight: 90 kg

DRUGS (7)
  1. SERTRALINE HYDROCHLORIDE [Suspect]
     Active Substance: SERTRALINE HYDROCHLORIDE
     Indication: Product used for unknown indication
     Dosage: 150 MILLIGRAM (150 MILLIGRAM, 1 TOTAL)
     Route: 048
     Dates: start: 20180802, end: 20180802
  2. SERTRALINE [Suspect]
     Active Substance: SERTRALINE HYDROCHLORIDE
     Indication: Product used for unknown indication
     Dosage: 150 MILLIGRAM (150 MG, SINGLE (150 MG ONCE/SINGLE))
     Route: 065
     Dates: start: 20180802
  3. RAMIPRIL [Suspect]
     Active Substance: RAMIPRIL
     Indication: Product used for unknown indication
     Dosage: 30 MILLIGRAM (30 MG, SINGLE (30 MG ONCE/SINGLE) ; IN TOTAL)
     Route: 048
     Dates: start: 20180802, end: 20180802
  4. BISOPROLOL [Suspect]
     Active Substance: BISOPROLOL\BISOPROLOL FUMARATE
     Indication: Product used for unknown indication
     Dosage: 75 MILLIGRAM,1 TOTAL
     Route: 048
     Dates: start: 20180802, end: 20180802
  5. ALCOHOL [Suspect]
     Active Substance: ALCOHOL
     Indication: Product used for unknown indication
     Dosage: UNK (MANY LITERS (1) ; IN TOTAL0
     Route: 048
     Dates: start: 20180802, end: 20180802
  6. METOPROLOL TARTRATE [Suspect]
     Active Substance: METOPROLOL TARTRATE
     Indication: Product used for unknown indication
     Dosage: 1000 MILLIGRAM
     Route: 048
     Dates: start: 20180802, end: 20180802
  7. PIPAMPERONE [Suspect]
     Active Substance: PIPAMPERONE
     Indication: Product used for unknown indication
     Dosage: 560 MILLIGRAM (560 MG, SINGLE (560 MG ONCE/SINGLE) / 1TOTAL)
     Route: 048
     Dates: start: 20180802, end: 20180802

REACTIONS (2)
  - Hypotension [Unknown]
  - Intentional overdose [Unknown]

NARRATIVE: CASE EVENT DATE: 20180802
